FAERS Safety Report 21522199 (Version 1)
Quarter: 2022Q4

REPORT INFORMATION
  Report Type: Spontaneous
  Country: US (occurrence: US)
  Receive Date: 20221028
  Receipt Date: 20221028
  Transmission Date: 20230112
  Serious: No
  Sender: FDA-Public Use
  Company Number: US-GILEAD-2022-0603006

PATIENT
  Sex: Male

DRUGS (3)
  1. DESCOVY [Suspect]
     Active Substance: EMTRICITABINE\TENOFOVIR ALAFENAMIDE FUMARATE
     Indication: Prophylaxis against HIV infection
     Dosage: UNK
     Route: 065
     Dates: start: 202207
  2. PROSCAR [Concomitant]
     Active Substance: FINASTERIDE
     Dosage: DOUBLED DOSE
  3. PRALUENT [Concomitant]
     Active Substance: ALIROCUMAB

REACTIONS (6)
  - Chest pain [Unknown]
  - Abdominal pain upper [Unknown]
  - Pollakiuria [Unknown]
  - Blood cholesterol abnormal [Unknown]
  - Insomnia [Unknown]
  - Circumstance or information capable of leading to medication error [Unknown]

NARRATIVE: CASE EVENT DATE: 20221022
